FAERS Safety Report 5635937-9 (Version None)
Quarter: 2008Q1

REPORT INFORMATION
  Report Type: 
  Country: None (occurrence: None)
  Receive Date: 20080224
  Receipt Date: 20080221
  Transmission Date: 20080703
  Serious: Yes (Other)
  Sender: FDA-Public Use
  Company Number: PHEH2008US00641

PATIENT
  Sex: Female
  Weight: 40.816 kg

DRUGS (1)
  1. EXELON [Suspect]
     Indication: PARKINSON'S DISEASE
     Dosage: 4.6 MG/DAY, QD
     Route: 062
     Dates: start: 20071201

REACTIONS (2)
  - MUSCLE DISORDER [None]
  - STUPOR [None]
